FAERS Safety Report 8663563 (Version 2)
Quarter: 2012Q4

REPORT INFORMATION
  Report Type: 
  Country: US (occurrence: US)
  Receive Date: 20120713
  Receipt Date: 20120904
  Transmission Date: 20130627
  Serious: Yes (Death, Hospitalization)
  Sender: FDA-Public Use
  Company Number: US-B.I. PHARMACEUTICALS,INC./RIDGEFIELD-2012-BP-15257BP

PATIENT
  Age: 70 None
  Sex: Female

DRUGS (1)
  1. PRADAXA [Suspect]
     Indication: ATRIAL FIBRILLATION
     Dates: start: 20111001, end: 20111201

REACTIONS (7)
  - Multiple sclerosis [Fatal]
  - Cardiac failure congestive [Unknown]
  - Abnormal behaviour [Not Recovered/Not Resolved]
  - Aphasia [Not Recovered/Not Resolved]
  - Contusion [Recovered/Resolved]
  - Hallucination [Recovered/Resolved]
  - Confusional state [Recovered/Resolved]
